FAERS Safety Report 20735279 (Version 4)
Quarter: 2023Q1

REPORT INFORMATION
  Report Type: Other
  Country: JP (occurrence: JP)
  Receive Date: 20220421
  Receipt Date: 20230308
  Transmission Date: 20230417
  Serious: Yes (Death, Other)
  Sender: FDA-Public Use
  Company Number: JP-CHUGAI-2021015861

PATIENT
  Age: 75 Year
  Sex: Male

DRUGS (4)
  1. ATEZOLIZUMAB [Suspect]
     Active Substance: ATEZOLIZUMAB
     Indication: Hepatocellular carcinoma
     Route: 041
     Dates: start: 20210528
  2. ATEZOLIZUMAB [Suspect]
     Active Substance: ATEZOLIZUMAB
     Dosage: ON 02/FEB/2022, HE RECEIVED MOST RECENT DOSE.
     Route: 041
     Dates: start: 2021, end: 20220202
  3. BEVACIZUMAB [Suspect]
     Active Substance: BEVACIZUMAB
     Indication: Hepatocellular carcinoma
     Route: 041
     Dates: start: 20210528
  4. BEVACIZUMAB [Suspect]
     Active Substance: BEVACIZUMAB
     Dosage: ON 02/FEB/2022, HE RECEIVED MOST RECENT DOSE.
     Route: 041
     Dates: start: 2021, end: 20220202

REACTIONS (12)
  - Hypertension [Recovered/Resolved]
  - Dermatitis bullous [Unknown]
  - Disease progression [Fatal]
  - Proteinuria [Unknown]
  - Arthritis [Recovered/Resolved]
  - Hypersensitivity [Recovered/Resolved]
  - Decreased appetite [Recovered/Resolved]
  - Hepatic function abnormal [Recovered/Resolved]
  - Haemorrhage [Recovered/Resolved]
  - Periarthritis [Recovered/Resolved]
  - Oedema peripheral [Unknown]
  - Hypertension [Unknown]

NARRATIVE: CASE EVENT DATE: 20210623
